FAERS Safety Report 7513145-4 (Version None)
Quarter: 2011Q2

REPORT INFORMATION
  Report Type: 
  Country: None (occurrence: None)
  Receive Date: 20110525
  Receipt Date: 20110525
  Transmission Date: 20111010
  Serious: Yes (Hospitalization, Disabling, Other)
  Sender: FDA-Public Use
  Company Number: None

PATIENT
  Age: 84 Year
  Sex: Female
  Weight: 69.4003 kg

DRUGS (6)
  1. PREDNISONE [Suspect]
     Indication: SURGERY
     Dosage: 60MG; 40MG; 20MG
     Dates: start: 20110308, end: 20110316
  2. PREDNISONE [Suspect]
     Indication: TEMPORAL ARTERITIS
     Dosage: 60MG; 40MG; 20MG
     Dates: start: 20110308, end: 20110316
  3. PREDNISONE [Suspect]
     Indication: SURGERY
     Dosage: 60MG; 40MG; 20MG
     Dates: start: 20110320, end: 20110325
  4. PREDNISONE [Suspect]
     Indication: TEMPORAL ARTERITIS
     Dosage: 60MG; 40MG; 20MG
     Dates: start: 20110320, end: 20110325
  5. PREDNISONE [Suspect]
     Indication: SURGERY
     Dosage: 60MG; 40MG; 20MG
     Dates: start: 20110317, end: 20110319
  6. PREDNISONE [Suspect]
     Indication: TEMPORAL ARTERITIS
     Dosage: 60MG; 40MG; 20MG
     Dates: start: 20110317, end: 20110319

REACTIONS (14)
  - ABASIA [None]
  - NAUSEA [None]
  - ABDOMINAL PAIN UPPER [None]
  - CARDIAC FAILURE [None]
  - MINERAL DEFICIENCY [None]
  - DYSURIA [None]
  - MUSCLE SPASMS [None]
  - SYNCOPE [None]
  - BLOOD PRESSURE DECREASED [None]
  - MYOPATHY [None]
  - INSOMNIA [None]
  - MENTAL STATUS CHANGES [None]
  - VISION BLURRED [None]
  - ASTHENIA [None]
